FAERS Safety Report 5858262-X (Version None)
Quarter: 2008Q3

REPORT INFORMATION
  Report Type: 
  Country: None (occurrence: None)
  Receive Date: 20080826
  Receipt Date: 20080818
  Transmission Date: 20090109
  Serious: Yes (Other)
  Sender: FDA-Public Use
  Company Number: A0744287A

PATIENT
  Age: 11 Year
  Sex: Female
  Weight: 26.8 kg

DRUGS (1)
  1. ADVAIR DISKUS 100/50 [Suspect]
     Indication: ASTHMA
     Dates: start: 20080701

REACTIONS (2)
  - ASTHMA EXERCISE INDUCED [None]
  - DRUG INEFFECTIVE [None]
